FAERS Safety Report 5932736-5 (Version None)
Quarter: 2008Q4

REPORT INFORMATION
  Report Type: 
  Country: None (occurrence: None)
  Receive Date: 20081028
  Receipt Date: 20081014
  Transmission Date: 20090506
  Serious: Yes (Death, Hospitalization, Other)
  Sender: FDA-Public Use
  Company Number: CA-ELI_LILLY_AND_COMPANY-CA200808001623

PATIENT
  Age: 86 Year
  Sex: Female

DRUGS (9)
  1. FORTEO [Suspect]
     Indication: OSTEOPOROSIS
     Dosage: 20 UG, DAILY (1/D)
     Route: 058
     Dates: start: 20071016, end: 20080806
  2. FORTEO [Suspect]
     Dosage: 20 UG, DAILY (1/D)
     Route: 058
     Dates: start: 20080801
  3. LASIX [Concomitant]
  4. ANTIHYPERTENSIVES [Concomitant]
  5. COUMADIN [Concomitant]
  6. COZAAR [Concomitant]
  7. ADVAIR DISKUS 100/50 [Concomitant]
  8. SPIRIVA [Concomitant]
  9. VENTOLIN [Concomitant]

REACTIONS (3)
  - BLOOD CALCIUM INCREASED [None]
  - CEREBROVASCULAR ACCIDENT [None]
  - PULMONARY OEDEMA [None]
